FAERS Safety Report 13960987 (Version 4)
Quarter: 2018Q1

REPORT INFORMATION
  Report Type: Spontaneous
  Country: NL (occurrence: NL)
  Receive Date: 20170912
  Receipt Date: 20180316
  Transmission Date: 20180508
  Serious: Yes (Other)
  Sender: FDA-Public Use
  Company Number: NL-ASTRAZENECA-2017SE93277

PATIENT
  Age: 57 Year
  Sex: Male

DRUGS (5)
  1. NEXIUM CONTROL [Suspect]
     Active Substance: ESOMEPRAZOLE MAGNESIUM
     Route: 048
  2. KENACORT [Concomitant]
     Active Substance: TRIAMCINOLONE
     Dosage: INJECTION IN SHOULDER (BY ORTHOPEDIST)
     Dates: start: 20170706, end: 20170706
  3. MAGNESIUM HYDROXIDE. [Concomitant]
     Active Substance: MAGNESIUM HYDROXIDE
  4. LIDOCAINE. [Concomitant]
     Active Substance: LIDOCAINE
  5. NEXIUM [Suspect]
     Active Substance: ESOMEPRAZOLE MAGNESIUM
     Indication: BARRETT^S OESOPHAGUS
     Route: 048
     Dates: start: 20170228

REACTIONS (10)
  - Gastric haemorrhage [Unknown]
  - Chest discomfort [Unknown]
  - Dyspnoea [Unknown]
  - Abdominal pain [Unknown]
  - Off label use [Unknown]
  - Product use in unapproved indication [Unknown]
  - Dyspepsia [Recovering/Resolving]
  - Chest pain [Unknown]
  - Discoloured vomit [Recovering/Resolving]
  - Product taste abnormal [Unknown]

NARRATIVE: CASE EVENT DATE: 20160901
